FAERS Safety Report 5319911-8 (Version None)
Quarter: 2007Q2

REPORT INFORMATION
  Report Type: 
  Country: None (occurrence: None)
  Receive Date: 20070503
  Receipt Date: 20070419
  Transmission Date: 20071010
  Serious: Yes (Disabling)
  Sender: FDA-Public Use
  Company Number: US-CVT-070097

PATIENT
  Age: 64 Year
  Sex: Female

DRUGS (19)
  1. RANEXA [Suspect]
     Indication: ANGINA PECTORIS
     Dosage: SEE IMAGE
     Route: 048
     Dates: start: 20061127
  2. RANEXA [Suspect]
     Indication: ANGINA PECTORIS
     Dosage: SEE IMAGE
     Route: 048
     Dates: start: 20070301
  3. RANEXA [Suspect]
     Indication: ANGINA PECTORIS
     Dosage: SEE IMAGE
     Route: 048
     Dates: start: 20070415
  4. LANTUS [Concomitant]
  5. ASTELIN [Concomitant]
  6. OXYGEN (OXYGEN) [Concomitant]
  7. ALTACE [Concomitant]
  8. FAMOTIDINE [Concomitant]
  9. GABAPENTIN [Concomitant]
  10. HYDROCHLOROTHIAZIDE [Concomitant]
  11. LIPITOR /01326101/ (ATORVASTATIN) [Concomitant]
  12. NITROGLYCERIN [Concomitant]
  13. NOVOLOG [Concomitant]
  14. PLAVIX [Concomitant]
  15. SYNTHROID [Concomitant]
  16. LOPRESSOR [Concomitant]
  17. GLUCOPHAGE /00082701/ (METFORMIN) [Concomitant]
  18. ADVAIR DISKUS 100/50 [Concomitant]
  19. POTASSIUM /00031401/ (POTASSIUM) [Concomitant]

REACTIONS (7)
  - ANGINA PECTORIS [None]
  - BLINDNESS [None]
  - DIABETIC GASTROPARESIS [None]
  - DIABETIC RETINOPATHY [None]
  - HEADACHE [None]
  - HYPOGLYCAEMIA [None]
  - NAUSEA [None]
